FAERS Safety Report 22057394 (Version 2)
Quarter: 2023Q1

REPORT INFORMATION
  Report Type: Spontaneous
  Country: US (occurrence: US)
  Receive Date: 20230303
  Receipt Date: 20230327
  Transmission Date: 20230417
  Serious: No
  Sender: FDA-Public Use
  Company Number: US-ALKERMES INC.-ALK-2023-000921

PATIENT
  Age: 40 Year
  Sex: Female
  Weight: 66.667 kg

DRUGS (9)
  1. VIVITROL [Suspect]
     Active Substance: NALTREXONE
     Indication: Alcoholism
     Dosage: 380 MILLIGRAM, QMO
     Route: 030
  2. VIVITROL [Suspect]
     Active Substance: NALTREXONE
     Indication: Alcohol use
  3. GABAPENTIN [Concomitant]
     Active Substance: GABAPENTIN
     Indication: Myalgia
     Dosage: 300 MILLIGRAM, QHS
     Route: 048
     Dates: start: 202208
  4. GABAPENTIN [Concomitant]
     Active Substance: GABAPENTIN
     Indication: Anxiety
  5. CLOZAPINE [Concomitant]
     Active Substance: CLOZAPINE
     Indication: Product used for unknown indication
     Dosage: UNK
     Route: 065
  6. CLONIDINE [Concomitant]
     Active Substance: CLONIDINE
     Indication: Anxiety
     Dosage: 10 MILLIGRAM, BID
     Route: 065
     Dates: start: 20230125
  7. TOPIRAMATE [Concomitant]
     Active Substance: TOPIRAMATE
     Indication: Anxiety
     Dosage: 500 MILLIGRAM, BID
     Route: 048
     Dates: start: 20230125
  8. TOPIRAMATE [Concomitant]
     Active Substance: TOPIRAMATE
     Indication: Alcoholic seizure
  9. SEROQUEL [Concomitant]
     Active Substance: QUETIAPINE FUMARATE
     Indication: Sleep disorder
     Dosage: 150 MILLIGRAM, QHS
     Route: 048
     Dates: start: 202208

REACTIONS (15)
  - Drug effect less than expected [Recovering/Resolving]
  - Product preparation error [Recovering/Resolving]
  - Pain [Recovering/Resolving]
  - Drug screen positive [Unknown]
  - Tension [Not Recovered/Not Resolved]
  - Injection site reaction [Recovering/Resolving]
  - Injection site pain [Recovering/Resolving]
  - Injection site mass [Recovering/Resolving]
  - Injection site induration [Recovering/Resolving]
  - Injection site discomfort [Recovering/Resolving]
  - Nausea [Recovering/Resolving]
  - Anxiety [Not Recovered/Not Resolved]
  - Alcoholism [Recovering/Resolving]
  - Muscle tightness [Recovering/Resolving]
  - Dizziness [Recovering/Resolving]

NARRATIVE: CASE EVENT DATE: 20230222
